FAERS Safety Report 16724623 (Version 1)
Quarter: 2019Q3

REPORT INFORMATION
  Report Type: Spontaneous
  Country: US (occurrence: US)
  Receive Date: 20190821
  Receipt Date: 20190821
  Transmission Date: 20191005
  Serious: No
  Sender: FDA-Public Use
  Company Number: US-PFIZER INC-2019351219

PATIENT
  Age: 36 Year
  Sex: Female
  Weight: 53.52 kg

DRUGS (5)
  1. HALCION [Suspect]
     Active Substance: TRIAZOLAM
     Indication: INSOMNIA
     Dosage: 0.25 MG, 2X/DAY (TWICE A NIGHT)
  2. HALCION [Suspect]
     Active Substance: TRIAZOLAM
     Indication: ANXIETY
  3. HALCION [Suspect]
     Active Substance: TRIAZOLAM
     Indication: SLEEP DISORDER
     Dosage: UNK, DAILY [1.25 TABLETS A DAY FOR 30 DAYS]
     Route: 048
  4. HALCION [Suspect]
     Active Substance: TRIAZOLAM
     Indication: NIGHTMARE
  5. HALCION [Suspect]
     Active Substance: TRIAZOLAM
     Indication: DEPRESSION

REACTIONS (1)
  - Weight decreased [Unknown]
